FAERS Safety Report 15173218 (Version 1)
Quarter: 2018Q3

REPORT INFORMATION
  Report Type: Report from Study
  Country: GB (occurrence: GB)
  Receive Date: 20180720
  Receipt Date: 20180720
  Transmission Date: 20181010
  Serious: Yes (Death, Other)
  Sender: FDA-Public Use
  Company Number: GB-BAYER-2018-133476

PATIENT
  Age: 58 Year

DRUGS (2)
  1. HEPARIN [Interacting]
     Active Substance: HEPARIN SODIUM
     Dosage: 5000 IU, UNK
     Route: 040
  2. ASPIRIN. [Suspect]
     Active Substance: ASPIRIN
     Dosage: 500 MG, UNK

REACTIONS (4)
  - Labelled drug-drug interaction medication error [None]
  - Ruptured cerebral aneurysm [Fatal]
  - Cerebrovascular accident [Fatal]
  - Drug administration error [None]
